FAERS Safety Report 6964046-1 (Version None)
Quarter: 2010Q3

REPORT INFORMATION
  Report Type: 
  Country: None (occurrence: None)
  Receive Date: 20100902
  Receipt Date: 20100902
  Transmission Date: 20110219
  Serious: Yes (Hospitalization)
  Sender: FDA-Public Use
  Company Number: None

PATIENT
  Age: 63 Year
  Sex: Male

DRUGS (2)
  1. INDOMETHACIN [Suspect]
     Indication: GOUT
     Dates: start: 20090909, end: 20091015
  2. INDOMETHACIN [Suspect]
     Indication: PAIN
     Dates: start: 20090909, end: 20091015

REACTIONS (1)
  - GASTROINTESTINAL HAEMORRHAGE [None]
